FAERS Safety Report 5993389-3 (Version None)
Quarter: 2008Q4

REPORT INFORMATION
  Report Type: 
  Country: None (occurrence: None)
  Receive Date: 20081212
  Receipt Date: 20081208
  Transmission Date: 20090506
  Serious: Yes (Life-Threatening, Hospitalization, Disabling)
  Sender: FDA-Public Use
  Company Number: DE-BAYER-200831383GPV

PATIENT
  Age: 41 Year
  Sex: Male
  Weight: 94 kg

DRUGS (5)
  1. AVELOX [Suspect]
     Indication: INFECTION
     Dosage: TOTAL DAILY DOSE: 400 MG  UNIT DOSE: 400 MG
     Route: 042
     Dates: start: 20081002, end: 20081002
  2. AVELOX [Suspect]
     Dosage: TOTAL DAILY DOSE: 400 MG  UNIT DOSE: 400 MG
     Route: 048
  3. ASPIRIN [Concomitant]
     Indication: PYREXIA
     Route: 042
     Dates: start: 20081001, end: 20081001
  4. AUGMENTIN '125' [Concomitant]
     Indication: INFECTION
     Route: 048
     Dates: start: 20080901, end: 20080901
  5. IBUPROFEN [Concomitant]
     Indication: PYREXIA
     Route: 065
     Dates: start: 20081001

REACTIONS (2)
  - RENAL FAILURE [None]
  - RHABDOMYOLYSIS [None]
